FAERS Safety Report 14683084 (Version 1)
Quarter: 2018Q1

REPORT INFORMATION
  Report Type: Spontaneous
  Country: SE (occurrence: SE)
  Receive Date: 20180327
  Receipt Date: 20180327
  Transmission Date: 20180509
  Serious: Yes (Death)
  Sender: FDA-Public Use
  Company Number: SE-CLINIGEN GROUP PLC/ CLINIGEN HEALTHCARE LTD-SE-CLGN-18-00128

PATIENT
  Age: 44 Year
  Sex: Male

DRUGS (2)
  1. FOSCARNET SODIUM. [Suspect]
     Active Substance: FOSCARNET SODIUM
     Indication: HUMAN HERPESVIRUS 6 INFECTION
     Route: 042
  2. FOSCARNET SODIUM. [Suspect]
     Active Substance: FOSCARNET SODIUM
     Indication: ENCEPHALITIS VIRAL

REACTIONS (3)
  - Human herpesvirus 6 infection [Fatal]
  - Encephalitis viral [Fatal]
  - Off label use [Unknown]
